FAERS Safety Report 4707788-0 (Version None)
Quarter: 2005Q2

REPORT INFORMATION
  Report Type: 
  Country: None (occurrence: None)
  Receive Date: 20050629
  Receipt Date: 20050419
  Transmission Date: 20051028
  Serious: No
  Sender: FDA-Public Use
  Company Number: 05P-163-0297859-00

PATIENT
  Age: 52 Year
  Sex: Female
  Weight: 61.6892 kg

DRUGS (11)
  1. HUMIRA [Suspect]
     Indication: RHEUMATOID ARTHRITIS
     Dosage: 40 MG, 1 IN 2 WK, SUBCUTANEOUS
     Route: 058
     Dates: start: 20050207
  2. HYDROXYCHLOROQUINE PHOSPHATE [Concomitant]
  3. DOXYCYCLINE HYCLATE [Concomitant]
  4. CALCIUM GLUCONATE [Concomitant]
  5. ERGOCALCIFEROL [Concomitant]
  6. CENTRUM [Concomitant]
  7. REJUVEX [Concomitant]
  8. SUCRALFATE [Concomitant]
  9. MORPHINE [Concomitant]
  10. CLONAZEPAM [Concomitant]
  11. ATENOLOL [Concomitant]

REACTIONS (4)
  - CHEST PAIN [None]
  - GASTRITIS [None]
  - PRURITUS [None]
  - RASH [None]
